FAERS Safety Report 11816194 (Version 2)
Quarter: 2016Q1

REPORT INFORMATION
  Report Type: Spontaneous
  Country: CA (occurrence: CA)
  Receive Date: 20151209
  Receipt Date: 20160120
  Transmission Date: 20160525
  Serious: Yes (Other)
  Sender: FDA-Public Use
  Company Number: CA-REGENERON PHARMACEUTICALS, INC.-2015-14547

PATIENT

DRUGS (9)
  1. FLUORESCEIN [Concomitant]
     Active Substance: FLUORESCEIN
  2. ZYMAR [Suspect]
     Active Substance: GATIFLOXACIN
     Indication: PRODUCT USED FOR UNKNOWN INDICATION
  3. TETRACAINE. [Concomitant]
     Active Substance: TETRACAINE
  4. EYLEA [Suspect]
     Active Substance: AFLIBERCEPT
     Indication: AGE-RELATED MACULAR DEGENERATION
     Dosage: 40 MG/ML, UNK, TOTAL DOSES UNKNOWN
     Route: 031
  5. POVIDONE IODINE [Suspect]
     Active Substance: POVIDONE-IODINE
     Indication: PRODUCT USED FOR UNKNOWN INDICATION
  6. CHYOLESTHOL [Concomitant]
     Dosage: UNK
  7. MYDRIACYL [Suspect]
     Active Substance: TROPICAMIDE
     Indication: PRODUCT USED FOR UNKNOWN INDICATION
  8. XYLOCAINE [Concomitant]
     Active Substance: LIDOCAINE HYDROCHLORIDE
  9. MYDFRIN [Concomitant]
     Active Substance: PHENYLEPHRINE HYDROCHLORIDE

REACTIONS (3)
  - Headache [Recovered/Resolved]
  - Rosacea [Recovered/Resolved]
  - Dermatitis contact [Recovered/Resolved]

NARRATIVE: CASE EVENT DATE: 20150916
